FAERS Safety Report 7415768-X (Version None)
Quarter: 2011Q2

REPORT INFORMATION
  Report Type: 
  Country: None (occurrence: None)
  Receive Date: 20110406
  Receipt Date: 20110328
  Transmission Date: 20111010
  Serious: Yes (Other)
  Sender: FDA-Public Use
  Company Number: 2011SP014267

PATIENT
  Age: 39 Year
  Sex: Female

DRUGS (1)
  1. PHENPROCOUMON (PHENPROCOUMON /00034501/) [Suspect]
     Indication: PRODUCT USED FOR UNKNOWN INDICATION

REACTIONS (4)
  - OFF LABEL USE [None]
  - INDUCED ABORTION FAILED [None]
  - TOXICITY TO VARIOUS AGENTS [None]
  - DRUG EXPOSURE DURING PREGNANCY [None]
